FAERS Safety Report 9220412 (Version 1)
Quarter: 2013Q1

REPORT INFORMATION
  Report Type: Spontaneous
  Country: US (occurrence: None)
  Receive Date: 20120831
  Receipt Date: 20120831
  Transmission Date: 20140127
  Serious: No
  Sender: FDA-Public Use
  Company Number: 1000030972

PATIENT
  Age: 55 Year
  Sex: Female

DRUGS (2)
  1. DALIRESP [Suspect]
     Indication: CHRONIC OBSTRUCTIVE PULMONARY DISEASE
     Dosage: (500 MCG, 1 IN 1 D)
     Route: 048
  2. ADVAIR (SERETIDE) (SERETIDE) [Concomitant]

REACTIONS (2)
  - Agitation [None]
  - Feeling abnormal [None]
